FAERS Safety Report 14537503 (Version 1)
Quarter: 2018Q1

REPORT INFORMATION
  Report Type: Spontaneous
  Country: FR (occurrence: FR)
  Receive Date: 20180215
  Receipt Date: 20180215
  Transmission Date: 20180509
  Serious: Yes (Death, Hospitalization)
  Sender: FDA-Public Use
  Company Number: FR-ALLERGAN-1808888US

PATIENT
  Age: 65 Year
  Sex: Female

DRUGS (13)
  1. PIPORTIL [Suspect]
     Active Substance: PIPOTIAZINE
     Indication: PSYCHOTIC DISORDER
     Dosage: 50 MG, QD
     Route: 065
     Dates: start: 20141231, end: 20141231
  2. FORLAX [Concomitant]
     Active Substance: POLYETHYLENE GLYCOL 4000
     Route: 065
  3. AKINETON [Concomitant]
     Active Substance: BIPERIDEN HYDROCHLORIDE
     Route: 065
  4. NORSET [Suspect]
     Active Substance: MIRTAZAPINE
     Indication: PSYCHOTIC DISORDER
     Dosage: UNK UNK, QD
     Route: 065
     Dates: start: 20150106, end: 20150109
  5. QUINAPRIL HYDROCHLORIDE AND HYDROCHLOROTHIAZIDE [Concomitant]
     Active Substance: HYDROCHLOROTHIAZIDE\QUINAPRIL HYDROCHLORIDE
     Dosage: UNK
     Route: 065
     Dates: end: 20150106
  6. FOSFOMYCIN TROMETHAMINE - BP [Suspect]
     Active Substance: FOSFOMYCIN TROMETHAMINE
     Indication: PRODUCT USED FOR UNKNOWN INDICATION
     Dosage: 3 G, SINGLE
     Route: 048
     Dates: start: 20150109, end: 20150109
  7. CLOPIXOL [Suspect]
     Active Substance: ZUCLOPENTHIXOL ACETATE
     Indication: PSYCHOTIC DISORDER
     Dosage: 50 MG, QD
     Route: 065
     Dates: start: 20150108, end: 20150108
  8. PARKINANE [Suspect]
     Active Substance: TRIHEXYPHENIDYL HYDROCHLORIDE
     Indication: PSYCHOTIC DISORDER
     Dosage: 5 MG, QD
     Route: 065
     Dates: start: 20141220, end: 20150110
  9. DIVARIUS [Concomitant]
     Active Substance: PAROXETINE MESYLATE
     Route: 065
  10. MIANSERINE ARROW [Suspect]
     Active Substance: MIANSERIN HYDROCHLORIDE
     Indication: PSYCHOTIC DISORDER
     Dosage: 30 MG, QD
     Route: 065
     Dates: start: 20141227, end: 20150106
  11. LISANXIA [Suspect]
     Active Substance: PRAZEPAM
     Indication: PSYCHOTIC DISORDER
     Dosage: 20 GTT, QID
     Route: 065
     Dates: start: 20150105, end: 20150105
  12. TERCIAN [Suspect]
     Active Substance: CYAMEMAZINE
     Indication: PSYCHOTIC DISORDER
     Dosage: 30 GTT, QOD
     Route: 065
     Dates: start: 20141220, end: 20150110
  13. IMOVANE [Concomitant]
     Active Substance: ZOPICLONE
     Route: 065

REACTIONS (5)
  - General physical health deterioration [None]
  - Tachycardia [None]
  - Oxygen saturation decreased [None]
  - Drug ineffective [None]
  - Death [Fatal]

NARRATIVE: CASE EVENT DATE: 20150110
